FAERS Safety Report 15245981 (Version 2)
Quarter: 2020Q1

REPORT INFORMATION
  Report Type: Report from Study
  Country: US (occurrence: US)
  Receive Date: 20180806
  Receipt Date: 20200318
  Transmission Date: 20200409
  Serious: Yes (Other)
  Sender: FDA-Public Use
  Company Number: PHHY2018US062992

PATIENT
  Age: 82 Year
  Sex: Female
  Weight: 90.7 kg

DRUGS (1)
  1. LAMPRENE [Suspect]
     Active Substance: CLOFAZIMINE
     Indication: MYCOBACTERIUM AVIUM COMPLEX INFECTION
     Dosage: 100 MG, QD
     Route: 048
     Dates: start: 20180531

REACTIONS (5)
  - Alopecia [Not Recovered/Not Resolved]
  - Visual impairment [Not Recovered/Not Resolved]
  - Deafness [Not Recovered/Not Resolved]
  - Condition aggravated [Not Recovered/Not Resolved]
  - Neuropathy peripheral [Not Recovered/Not Resolved]

NARRATIVE: CASE EVENT DATE: 20180621
